FAERS Safety Report 12861914 (Version 1)
Quarter: 2016Q4

REPORT INFORMATION
  Report Type: Spontaneous
  Country: US (occurrence: US)
  Receive Date: 20161018
  Receipt Date: 20161018
  Transmission Date: 20170207
  Serious: Yes (Hospitalization)
  Sender: FDA-Public Use
  Company Number: None

PATIENT
  Age: 63 Year
  Sex: Male

DRUGS (12)
  1. MINOCYCLINE [Concomitant]
     Active Substance: MINOCYCLINE\MINOCYCLINE HYDROCHLORIDE
  2. CARVEDILOL. [Concomitant]
     Active Substance: CARVEDILOL
  3. CAPECIGABINE 500MG [Suspect]
     Active Substance: CAPECITABINE
     Indication: COLORECTAL CANCER
     Dosage: 500MG 3 TABS BID X 7 DAYS ORAL
     Route: 048
     Dates: start: 20160314
  4. BENZONATATE. [Concomitant]
     Active Substance: BENZONATATE
  5. ERBITUX [Concomitant]
     Active Substance: CETUXIMAB
  6. LEVOTHYROXINE. [Concomitant]
     Active Substance: LEVOTHYROXINE
  7. CRESTOR [Concomitant]
     Active Substance: ROSUVASTATIN CALCIUM
  8. ASPIRIN. [Concomitant]
     Active Substance: ASPIRIN
  9. DIOVAN [Concomitant]
     Active Substance: VALSARTAN
  10. ONDANSETRON [Concomitant]
     Active Substance: ONDANSETRON
  11. OPDIVO [Concomitant]
     Active Substance: NIVOLUMAB
  12. POTSAAIUM CHLORIDE SOL [Concomitant]

REACTIONS (4)
  - Seizure [None]
  - Upper limb fracture [None]
  - Fall [None]
  - Haematoma [None]

NARRATIVE: CASE EVENT DATE: 20161004
